FAERS Safety Report 6356324-4 (Version None)
Quarter: 2009Q3

REPORT INFORMATION
  Report Type: 
  Country: None (occurrence: None)
  Receive Date: 20090915
  Receipt Date: 20090908
  Transmission Date: 20100115
  Serious: Yes (Hospitalization)
  Sender: FDA-Public Use
  Company Number: AR-AVENTIS-200920217GDDC

PATIENT
  Age: 63 Year
  Sex: Male

DRUGS (5)
  1. LANTUS [Suspect]
     Route: 058
     Dates: start: 20060101, end: 20090301
  2. LANTUS [Suspect]
     Route: 058
     Dates: start: 20090301
  3. AUTOPEN INSULIN INJECTION PEN [Suspect]
  4. INSULINS AND ANALOGUES,FAST-ACTING [Concomitant]
     Indication: DIABETES MELLITUS MANAGEMENT
  5. CLOPIDOGREL [Concomitant]

REACTIONS (2)
  - HYPERGLYCAEMIA [None]
  - ISCHAEMIC STROKE [None]
